FAERS Safety Report 23978336 (Version 1)
Quarter: 2024Q2

REPORT INFORMATION
  Report Type: Report from Study
  Country: CA (occurrence: CA)
  Receive Date: 20240614
  Receipt Date: 20240614
  Transmission Date: 20240716
  Serious: Yes (Hospitalization)
  Sender: FDA-Public Use
  Company Number: CA-002147023-NVSC2022CA230463

PATIENT
  Sex: Female

DRUGS (2)
  1. ERELZI [Suspect]
     Active Substance: ETANERCEPT-SZZS
     Indication: Rheumatoid arthritis
     Dosage: 50 MG;WEEKLY
     Route: 058
     Dates: start: 20240211
  2. HYRIMOZ [Suspect]
     Active Substance: ADALIMUMAB-ADAZ
     Indication: Rheumatoid arthritis
     Dosage: 40 MG
     Route: 058
     Dates: start: 20220704

REACTIONS (6)
  - Hospitalisation [Unknown]
  - Peripheral swelling [Unknown]
  - Pain in extremity [Unknown]
  - Weight decreased [Unknown]
  - Increased appetite [Unknown]
  - Weight increased [Unknown]
